FAERS Safety Report 4629421-9 (Version None)
Quarter: 2005Q2

REPORT INFORMATION
  Report Type: 
  Country: None (occurrence: None)
  Receive Date: 20050405
  Receipt Date: 20050323
  Transmission Date: 20051028
  Serious: Yes (Other)
  Sender: FDA-Public Use
  Company Number: 2005050353

PATIENT
  Age: 13 Year
  Sex: Female

DRUGS (1)
  1. GENOTROPIN [Suspect]
     Indication: TURNER'S SYNDROME
     Dosage: 2 MG (2 MG, DAILY), SUBCUTANEOUS
     Route: 058
     Dates: start: 20031025

REACTIONS (1)
  - HIP DYSPLASIA [None]
